FAERS Safety Report 12298819 (Version 1)
Quarter: 2016Q2

REPORT INFORMATION
  Report Type: Spontaneous
  Country: JP (occurrence: JP)
  Receive Date: 20160425
  Receipt Date: 20160425
  Transmission Date: 20160815
  Serious: Yes (Death, Life-Threatening, Hospitalization, Other)
  Sender: FDA-Public Use
  Company Number: JP-MACLEODS PHARMA UK LTD-MAC2016002669

PATIENT

DRUGS (2)
  1. CLOPIDOGREL [Suspect]
     Active Substance: CLOPIDOGREL BISULFATE
     Indication: ACUTE MYOCARDIAL INFARCTION
     Dosage: 300 MG
     Route: 065
  2. ASPIRIN. [Concomitant]
     Active Substance: ASPIRIN
     Indication: ACUTE MYOCARDIAL INFARCTION
     Dosage: 200 MG
     Route: 065

REACTIONS (8)
  - Ischaemic cardiomyopathy [Fatal]
  - Thrombotic thrombocytopenic purpura [Fatal]
  - Blood pressure decreased [Fatal]
  - Vomiting [Fatal]
  - Cardiogenic shock [Fatal]
  - Intravascular haemolysis [Fatal]
  - Renal impairment [Fatal]
  - Cardio-respiratory arrest [Fatal]
